FAERS Safety Report 8989640 (Version 1)
Quarter: 2012Q4

REPORT INFORMATION
  Report Type: 
  Country: JP (occurrence: JP)
  Receive Date: 20121228
  Receipt Date: 20121228
  Transmission Date: 20130627
  Serious: Yes (Death)
  Sender: FDA-Public Use
  Company Number: JP-GE HEALTHCARE MEDICAL DIAGNOSTICS-OMPQ-NO-1212S-1273

PATIENT
  Age: 86 Year
  Sex: Female

DRUGS (5)
  1. OMNIPAQUE [Suspect]
     Indication: PRODUCT USED FOR UNKNOWN INDICATION
     Route: 042
     Dates: start: 20121128, end: 20121128
  2. OMNIPAQUE [Suspect]
     Indication: DIAGNOSTIC PROCEDURE
  3. UNISIA [Concomitant]
  4. MAGMITT [Concomitant]
  5. PREMINENT [Concomitant]

REACTIONS (7)
  - Cerebral infarction [Fatal]
  - Anaphylactoid shock [Fatal]
  - Depressed level of consciousness [Fatal]
  - Blood pressure decreased [Fatal]
  - Blood pressure immeasurable [Fatal]
  - Cardiac arrest [Fatal]
  - Respiratory arrest [Fatal]
